FAERS Safety Report 7968168 (Version 3)
Quarter: 2013Q1

REPORT INFORMATION
  Report Type: Spontaneous
  Country: US (occurrence: US)
  Receive Date: 20110601
  Receipt Date: 20130312
  Transmission Date: 20140127
  Serious: Yes (Hospitalization, Other)
  Sender: FDA-Public Use
  Company Number: US-BAYER-201040721NA

PATIENT
  Age: 43 Year
  Sex: Female
  Weight: 90.7 kg

DRUGS (18)
  1. OCELLA [Suspect]
     Indication: CONTRACEPTION
     Dosage: UNK
     Dates: start: 1998, end: 2009
  2. YASMIN [Suspect]
     Indication: CONTRACEPTION
     Dosage: UNK
     Dates: start: 1998, end: 2009
  3. THERA-BIOTIC [Concomitant]
     Dosage: UNK
     Route: 048
     Dates: start: 2007, end: 2009
  4. SACCHAROMYCES BOULARDII [Concomitant]
     Dosage: UNK
     Route: 048
     Dates: start: 2007, end: 2010
  5. SODIUM BUTYRATE [Concomitant]
     Indication: DYSPEPSIA
     Dosage: UNK
     Route: 048
     Dates: start: 2007, end: 2010
  6. MULTIVITAMIN AND MINERAL SUPPLEMENT [Concomitant]
     Indication: VITAMIN SUPPLEMENTATION
     Dosage: UNK
     Route: 048
     Dates: start: 2007, end: 2010
  7. ENZYMES [Concomitant]
     Indication: DYSPEPSIA
     Dosage: UNK
     Route: 048
     Dates: start: 2007, end: 2010
  8. VITAMIN D [Concomitant]
     Dosage: UNK
     Route: 048
     Dates: start: 2008
  9. CHROMIUM PICOLINATE [Concomitant]
     Dosage: UNK
     Route: 048
     Dates: start: 2008
  10. VITAMIN B12 [Concomitant]
     Dosage: UNK
     Route: 048
     Dates: start: 2008
  11. IRON [Concomitant]
     Route: 048
  12. OSCAL [CALCIUM CARBONATE,VITAMIN D NOS] [Concomitant]
     Dosage: UNK
     Route: 048
     Dates: start: 2008
  13. BABY ASPIRIN [Concomitant]
     Dosage: UNK
     Route: 048
     Dates: start: 2006
  14. STEROIDS [Concomitant]
     Route: 048
  15. CIPRO [Concomitant]
  16. VANCOMYCIN [Concomitant]
  17. DIFLUCAN [Concomitant]
  18. LOMOTIL [DIPHENOXYLATE HYDROCHLORIDE] [Concomitant]

REACTIONS (8)
  - Deep vein thrombosis [None]
  - Deep vein thrombosis [None]
  - Thrombophlebitis superficial [None]
  - Anxiety [None]
  - Depression [None]
  - Splenic infarction [None]
  - Intestinal infarction [None]
  - Mental disorder [None]
